FAERS Safety Report 8816879 (Version 1)
Quarter: 2012Q4

REPORT INFORMATION
  Report Type: Spontaneous
  Country: US (occurrence: None)
  Receive Date: 20121002
  Receipt Date: 20121002
  Transmission Date: 20130627
  Serious: Yes (Other)
  Sender: FDA-Public Use
  Company Number: ACO_32126_2012

PATIENT
  Age: 60 Year
  Sex: Female
  Weight: 73 kg

DRUGS (13)
  1. AMPYRA [Suspect]
     Indication: DRUG USE FOR UNKNOWN INDICATION
     Route: 048
     Dates: start: 201006, end: 092010
  2. AMPYRA [Suspect]
     Indication: DRUG USE FOR UNKNOWN INDICATION
     Route: 048
     Dates: start: 101009, end: 201202
  3. AMPYRA [Suspect]
     Indication: DRUG USE FOR UNKNOWN INDICATION
     Route: 048
     Dates: start: 201202, end: 2012
  4. ARICEPT / DONEPEZIL [Suspect]
     Indication: MEMORY IMPAIRMENT
     Route: 048
  5. ARICEPT / DONEPEZIL [Suspect]
     Indication: MULTIPLE SCLEROSIS
     Route: 048
  6. ZOLOFT (SERTRALINE HYDROCHLORIDE) [Suspect]
     Indication: DEPRESSION
     Route: 048
     Dates: start: 201110
  7. ZOLOFT (SERTRALINE HYDROCHLORIDE) [Suspect]
     Indication: AFFECTIVE DISORDER
     Route: 048
     Dates: start: 201110
  8. REBIF (INTERFERON BETA-1A [Concomitant]
  9. BACLOFEN (BACLOFEN) [Concomitant]
  10. NUVIGIL (ARMODAFINIL) [Concomitant]
  11. NYSTATIN (NYSTATIN) [Concomitant]
  12. SANCTURA (TROSPIUM CHLORIDE) [Concomitant]
  13. MEDICAL MARIJUANA (MARIJUANA) [Concomitant]

REACTIONS (42)
  - Fracture [None]
  - Rotator cuff repair [None]
  - Ocular icterus [None]
  - Personality change [None]
  - Anger [None]
  - Depression [None]
  - Apathy [None]
  - Gait disturbance [None]
  - Gait disturbance [None]
  - Fatigue [None]
  - Musculoskeletal pain [None]
  - Stress [None]
  - Flatulence [None]
  - Agitation [None]
  - Diarrhoea [None]
  - Weight increased [None]
  - Memory impairment [None]
  - Snoring [None]
  - Vision blurred [None]
  - Diplopia [None]
  - Muscular weakness [None]
  - Muscle spasms [None]
  - Restless legs syndrome [None]
  - Chills [None]
  - Hot flush [None]
  - Alopecia [None]
  - Dysstasia [None]
  - Urine odour abnormal [None]
  - Dysuria [None]
  - Balance disorder [None]
  - Drug ineffective [None]
  - Inappropriate schedule of drug administration [None]
  - Urinary tract infection [None]
  - Anxiety [None]
  - Dyspepsia [None]
  - Hypophagia [None]
  - ELEVATED WHITE BLOOD CELL [None]
  - White blood cell count increased [None]
  - Blepharospasm [None]
  - Feeling of body temperature change [None]
  - Night sweats [None]
  - Menopause [None]
